FAERS Safety Report 22882751 (Version 3)
Quarter: 2023Q4

REPORT INFORMATION
  Report Type: Spontaneous
  Country: BR (occurrence: BR)
  Receive Date: 20230830
  Receipt Date: 20231007
  Transmission Date: 20240110
  Serious: Yes (Other)
  Sender: FDA-Public Use
  Company Number: BR-002147023-NVSC2023BR186777

PATIENT
  Age: 88 Year
  Sex: Female

DRUGS (3)
  1. DIOVAN HCT [Suspect]
     Active Substance: HYDROCHLOROTHIAZIDE\VALSARTAN
     Indication: Hypertension
     Dosage: 160 MG
     Route: 065
  2. DIOVAN HCT [Suspect]
     Active Substance: HYDROCHLOROTHIAZIDE\VALSARTAN
     Dosage: UNK, 320/12.5  MG
     Route: 065
  3. ATENOLOL [Concomitant]
     Active Substance: ATENOLOL
     Indication: Product used for unknown indication
     Dosage: UNK
     Route: 065

REACTIONS (15)
  - Blindness transient [Unknown]
  - Hypertension [Unknown]
  - Fall [Unknown]
  - Labyrinthitis [Unknown]
  - Gait disturbance [Unknown]
  - Blepharitis [Unknown]
  - COVID-19 [Unknown]
  - Head discomfort [Unknown]
  - Erythema [Unknown]
  - Hypersensitivity [Not Recovered/Not Resolved]
  - Back pain [Unknown]
  - Ligament sprain [Unknown]
  - Nausea [Unknown]
  - Pruritus [Not Recovered/Not Resolved]
  - Drug ineffective [Unknown]
